FAERS Safety Report 5271264-X (Version None)
Quarter: 2007Q1

REPORT INFORMATION
  Report Type: 
  Country: None (occurrence: None)
  Receive Date: 20070321
  Receipt Date: 20070319
  Transmission Date: 20070707
  Serious: Yes (Life-Threatening, Hospitalization)
  Sender: FDA-Public Use
  Company Number: JP-BAYER-200610784BYL

PATIENT
  Age: 66 Year
  Sex: Female

DRUGS (14)
  1. AVELOX [Suspect]
     Indication: PNEUMONIA
     Dosage: TOTAL DAILY DOSE: 400 MG  UNIT DOSE: 400 MG
     Route: 048
     Dates: start: 20060515, end: 20060517
  2. AVELOX [Suspect]
     Dosage: TOTAL DAILY DOSE: 400 MG  UNIT DOSE: 400 MG
     Route: 048
     Dates: start: 20060601, end: 20060612
  3. RHEUMATREX [Suspect]
     Indication: RHEUMATOID ARTHRITIS
     Dosage: TOTAL DAILY DOSE: 8 MG
     Route: 048
     Dates: end: 20060515
  4. MEDROL [Concomitant]
     Indication: RHEUMATOID ARTHRITIS
     Dosage: TOTAL DAILY DOSE: 2 MG  UNIT DOSE: 2 MG
     Route: 048
  5. DOGMATYL [Concomitant]
     Indication: DEPRESSION
     Dosage: TOTAL DAILY DOSE: 50 MG  UNIT DOSE: 50 MG
     Route: 048
  6. GASLON N [Concomitant]
     Indication: GASTRITIS
     Route: 048
  7. BISOLVON [Concomitant]
     Indication: CHRONIC SINUSITIS
     Route: 048
  8. MUCODYNE [Concomitant]
     Indication: CHRONIC SINUSITIS
     Route: 048
  9. BENET [Concomitant]
     Indication: OSTEOPOROSIS
     Route: 048
  10. SUCRALFATE [Concomitant]
     Indication: GASTRITIS
     Dosage: TOTAL DAILY DOSE: 9 G  UNIT DOSE: 1 G
     Route: 048
  11. CIPROFLOXACIN [Concomitant]
     Indication: PNEUMONIA
     Dosage: TOTAL DAILY DOSE: 600 MG
     Route: 042
     Dates: start: 20060522, end: 20060531
  12. UNASYN [Concomitant]
     Indication: PNEUMONIA
     Dosage: TOTAL DAILY DOSE: 6 G
     Route: 042
     Dates: start: 20060517, end: 20060522
  13. DALACIN [Concomitant]
     Indication: PNEUMONIA
     Dosage: TOTAL DAILY DOSE: 450 MG
     Route: 048
     Dates: start: 20060517, end: 20060522
  14. ERYTHROCIN [Concomitant]
     Indication: PNEUMONIA
     Dosage: TOTAL DAILY DOSE: 1500 MG
     Route: 011
     Dates: start: 20060525, end: 20060531

REACTIONS (1)
  - PNEUMONIA [None]
